FAERS Safety Report 4524472-7 (Version None)
Quarter: 2004Q4

REPORT INFORMATION
  Report Type: 
  Country: None (occurrence: None)
  Receive Date: 20041117
  Receipt Date: 20040322
  Transmission Date: 20050328
  Serious: Yes (Hospitalization)
  Sender: FDA-Public Use
  Company Number: US-JNJFOC-20030903418

PATIENT
  Age: 39 Year
  Sex: Male
  Weight: 84.8226 kg

DRUGS (1)
  1. LEVAQUIN [Suspect]
     Indication: BRONCHITIS

REACTIONS (1)
  - ALVEOLITIS ALLERGIC [None]
